FAERS Safety Report 4692974-9 (Version None)
Quarter: 2005Q2

REPORT INFORMATION
  Report Type: 
  Country: None (occurrence: None)
  Receive Date: 20050617
  Receipt Date: 20050608
  Transmission Date: 20051028
  Serious: Yes (Hospitalization)
  Sender: FDA-Public Use
  Company Number: JP-JNJFOC-20050307295

PATIENT
  Sex: Female

DRUGS (10)
  1. REMICADE [Suspect]
     Route: 042
  2. REMICADE [Suspect]
     Route: 042
  3. REMICADE [Suspect]
     Indication: RHEUMATOID ARTHRITIS
     Route: 042
  4. METHOTREXATE [Suspect]
     Indication: RHEUMATOID ARTHRITIS
     Route: 049
  5. STEROID [Concomitant]
  6. PREDNISOLONE [Concomitant]
     Indication: RHEUMATOID ARTHRITIS
     Route: 049
  7. HYPEN [Concomitant]
     Indication: RHEUMATOID ARTHRITIS
     Route: 049
  8. WANALFA [Concomitant]
     Indication: OSTEOPOROSIS
     Route: 049
  9. ACTONEL [Concomitant]
     Indication: OSTEOPOROSIS
     Route: 049
  10. FALKEN 40 [Concomitant]
     Indication: RHEUMATOID ARTHRITIS
     Dosage: 1 PATCH DAILY
     Route: 062

REACTIONS (2)
  - INTERSTITIAL LUNG DISEASE [None]
  - PNEUMOCYSTIS JIROVECI PNEUMONIA [None]
